FAERS Safety Report 23017909 (Version 2)
Quarter: 2025Q3

REPORT INFORMATION
  Report Type: Spontaneous
  Country: US (occurrence: US)
  Receive Date: 20231003
  Receipt Date: 20250812
  Transmission Date: 20251020
  Serious: Yes (Life-Threatening, Hospitalization)
  Sender: ACCORD
  Company Number: US-MLMSERVICE-20230918-4551226-1

PATIENT
  Age: 28 Year
  Sex: Male

DRUGS (2)
  1. BUPROPION HYDROCHLORIDE [Suspect]
     Active Substance: BUPROPION HYDROCHLORIDE
     Indication: Product used for unknown indication
     Route: 048
  2. OLANZAPINE [Suspect]
     Active Substance: OLANZAPINE
     Indication: Product used for unknown indication
     Route: 048

REACTIONS (12)
  - Bundle branch block right [Recovering/Resolving]
  - Electrocardiogram QT prolonged [Recovering/Resolving]
  - Toxicity to various agents [Recovering/Resolving]
  - Cardiogenic shock [Recovering/Resolving]
  - Generalised tonic-clonic seizure [Recovering/Resolving]
  - Loss of consciousness [Recovered/Resolved]
  - Cardiac arrest [Recovering/Resolving]
  - Electrocardiogram QRS complex prolonged [Recovering/Resolving]
  - Seizure [Recovering/Resolving]
  - Overdose [Unknown]
  - Pupillary reflex impaired [Recovering/Resolving]
  - Cardiac failure [Recovering/Resolving]
